FAERS Safety Report 8787913 (Version 3)
Quarter: 2012Q4

REPORT INFORMATION
  Report Type: 
  Country: HN (occurrence: HN)
  Receive Date: 20120914
  Receipt Date: 20121010
  Transmission Date: 20130627
  Serious: Yes (Other)
  Sender: FDA-Public Use
  Company Number: HN-ROCHE-1115956

PATIENT
  Age: 46 Year
  Sex: Female
  Weight: 62 kg

DRUGS (1)
  1. RITUXIMAB [Suspect]
     Indication: SYSTEMIC LUPUS ERYTHEMATOSUS
     Route: 042
     Dates: start: 20120821

REACTIONS (4)
  - Demyelination [Recovered/Resolved]
  - Vertigo [Recovered/Resolved]
  - Cognitive disorder [Unknown]
  - Motor dysfunction [Unknown]
